FAERS Safety Report 24420656 (Version 1)
Quarter: 2024Q4

REPORT INFORMATION
  Report Type: Spontaneous
  Country: US (occurrence: US)
  Receive Date: 20241010
  Receipt Date: 20241010
  Transmission Date: 20250114
  Serious: Yes (Life-Threatening, Hospitalization)
  Sender: HETERO
  Company Number: US-HETERO-HET2024US03502

PATIENT
  Age: 38 Year
  Sex: Male

DRUGS (1)
  1. METOPROLOL [Suspect]
     Active Substance: METOPROLOL
     Indication: Product used for unknown indication
     Dosage: 2000 MILLIGRAM(INTENTIONALLY INGESTED 40 METOPROLOL 50MG EXTENDED-RELEASE TABLETS)
     Route: 048

REACTIONS (4)
  - Unresponsive to stimuli [Recovering/Resolving]
  - Hypotension [Recovering/Resolving]
  - Shock [Recovering/Resolving]
  - Intentional overdose [Unknown]
